FAERS Safety Report 5619348-8 (Version None)
Quarter: 2008Q1

REPORT INFORMATION
  Report Type: 
  Country: None (occurrence: None)
  Receive Date: 20080114
  Receipt Date: 20070307
  Transmission Date: 20080703
  Serious: Yes (Life-Threatening, Hospitalization)
  Sender: FDA-Public Use
  Company Number: A03200701908

PATIENT
  Sex: Female

DRUGS (1)
  1. PLAVIX [Suspect]
     Indication: CARDIOVASCULAR DISORDER
     Dosage: 75 MG QD - ORAL
     Route: 048
     Dates: start: 20061001, end: 20070101

REACTIONS (4)
  - GASTROENTERITIS [None]
  - PANCREATITIS [None]
  - PANCYTOPENIA [None]
  - PNEUMONIA [None]
